FAERS Safety Report 24316498 (Version 2)
Quarter: 2024Q4

REPORT INFORMATION
  Report Type: Spontaneous
  Country: IT (occurrence: IT)
  Receive Date: 20240913
  Receipt Date: 20241119
  Transmission Date: 20250115
  Serious: Yes (Hospitalization, Other)
  Sender: SANOFI AVENTIS
  Company Number: IT-SA-2024SA263459

PATIENT
  Age: 50 Year
  Sex: Female

DRUGS (3)
  1. AUBAGIO [Suspect]
     Active Substance: TERIFLUNOMIDE
     Indication: Multiple sclerosis
     Dosage: 14 MG, QD
     Route: 048
     Dates: start: 202401, end: 20240822
  2. ESOMEPRAZOLE [Concomitant]
     Active Substance: ESOMEPRAZOLE
     Indication: Nausea
     Dosage: UNK UNK, QD
  3. MESALAMINE [Concomitant]
     Active Substance: MESALAMINE
     Dosage: 1200 MG, BID

REACTIONS (11)
  - Gastrointestinal disorder [Recovering/Resolving]
  - Diarrhoea haemorrhagic [Recovering/Resolving]
  - Uveitis [Unknown]
  - Colitis [Recovered/Resolved]
  - Duodenitis [Unknown]
  - Gastroenteritis [Unknown]
  - Vomiting [Unknown]
  - Diarrhoea [Unknown]
  - Decreased appetite [Unknown]
  - Micturition urgency [Unknown]
  - Weight decreased [Unknown]

NARRATIVE: CASE EVENT DATE: 20240101
